FAERS Safety Report 7724718-8 (Version None)
Quarter: 2011Q3

REPORT INFORMATION
  Report Type: 
  Country: None (occurrence: None)
  Receive Date: 20110901
  Receipt Date: 20110824
  Transmission Date: 20111222
  Serious: Yes (Hospitalization)
  Sender: FDA-Public Use
  Company Number: JP-GENZYME-THYM-1002728

PATIENT
  Sex: Female
  Weight: 44 kg

DRUGS (12)
  1. THYMOGLOBULIN [Suspect]
     Dosage: 100 MG, QD
     Route: 042
     Dates: start: 20110215, end: 20110215
  2. FILGRASTIM [Concomitant]
     Indication: PROPHYLAXIS
     Dosage: UNK
     Dates: start: 20110207, end: 20110307
  3. THYMOGLOBULIN [Suspect]
     Dosage: 165 MG, QD
     Route: 042
     Dates: start: 20110208, end: 20110208
  4. ITRACONAZOLE [Concomitant]
     Indication: INFECTION PROPHYLAXIS
     Dosage: UNK
     Dates: start: 20110207, end: 20110209
  5. PREDNISOLONE [Concomitant]
     Indication: PROPHYLAXIS
     Dosage: UNK
     Dates: start: 20110219, end: 20110317
  6. PLATELETS, CONCENTRATED [Concomitant]
     Indication: APLASTIC ANAEMIA
     Dosage: UNK
     Dates: start: 20110205, end: 20110407
  7. CYCLOSPORINE [Concomitant]
     Dosage: UNK
     Dates: start: 20110221
  8. METHYLPREDNISOLONE SODIUM SUCCINATE [Concomitant]
     Indication: PROPHYLAXIS
     Dosage: UNK
     Dates: start: 20110207, end: 20110218
  9. RED BLOOD CELLS, CONCENTRATED [Concomitant]
     Indication: APLASTIC ANAEMIA
     Dosage: UNK
     Dates: start: 20110202, end: 20110609
  10. THYMOGLOBULIN [Suspect]
     Indication: APLASTIC ANAEMIA
     Dosage: 167.5 MG, QD
     Route: 042
     Dates: start: 20110207, end: 20110207
  11. THYMOGLOBULIN [Suspect]
     Dosage: 165 MG, QD
     Route: 042
     Dates: start: 20110216, end: 20110217
  12. CYCLOSPORINE [Concomitant]
     Indication: APLASTIC ANAEMIA
     Dosage: UNK
     Dates: start: 20110207, end: 20110209

REACTIONS (4)
  - LIVER DISORDER [None]
  - PYREXIA [None]
  - SERUM SICKNESS [None]
  - HERPES PHARYNGITIS [None]
